FAERS Safety Report 12272113 (Version 1)
Quarter: 2016Q2

REPORT INFORMATION
  Report Type: Spontaneous
  Country: JP (occurrence: JP)
  Receive Date: 20160415
  Receipt Date: 20160415
  Transmission Date: 20160815
  Serious: Yes (Hospitalization, Other)
  Sender: FDA-Public Use
  Company Number: JP-MEDA-2016040036

PATIENT
  Age: 88 Year
  Sex: Female

DRUGS (4)
  1. MEMARY [Concomitant]
     Active Substance: MEMANTINE HYDROCHLORIDE
     Indication: DEMENTIA
  2. SEICHOUZAI [Concomitant]
  3. RISPERIDONE. [Suspect]
     Active Substance: RISPERIDONE
     Indication: AFFECT LABILITY
     Route: 048
  4. LUPRAC [Suspect]
     Active Substance: TORSEMIDE
     Route: 048

REACTIONS (4)
  - Muscle rigidity [Unknown]
  - Pyrexia [Unknown]
  - Vomiting [Unknown]
  - Pneumonia aspiration [Unknown]
